FAERS Safety Report 18660054 (Version 1)
Quarter: 2020Q4

REPORT INFORMATION
  Report Type: Spontaneous
  Country: FR (occurrence: FR)
  Receive Date: 20201224
  Receipt Date: 20201224
  Transmission Date: 20210114
  Serious: Yes (Hospitalization)
  Sender: FDA-Public Use
  Company Number: NVSC2020FR335104

PATIENT
  Age: 70 Year
  Sex: Female

DRUGS (9)
  1. KESTINLYO [Suspect]
     Active Substance: EBASTINE
     Indication: PRODUCT USED FOR UNKNOWN INDICATION
     Dosage: 1 DF,QD
     Route: 048
     Dates: end: 20201105
  2. METFORMINE ARROW [Suspect]
     Active Substance: METFORMIN HYDROCHLORIDE
     Indication: DIABETES MELLITUS
     Dosage: 3000 MG,QD
     Route: 048
  3. EUPRESSYL [Suspect]
     Active Substance: URAPIDIL
     Indication: HYPERTENSION
     Dosage: 180 MG, QD
     Route: 048
  4. OMEPRAZOL [Suspect]
     Active Substance: OMEPRAZOLE
     Indication: GASTRITIS
     Dosage: 20 MG,QD
     Route: 048
     Dates: end: 20201105
  5. BISOCE [Suspect]
     Active Substance: BISOPROLOL
     Indication: HYPERTENSION
     Dosage: 10 MG,QD
     Route: 048
  6. ASPIRINE PROTECT [Suspect]
     Active Substance: ASPIRIN
     Indication: PRODUCT USED FOR UNKNOWN INDICATION
     Dosage: 100 MG,QD
     Route: 048
     Dates: end: 20201105
  7. HUMALOG [Suspect]
     Active Substance: INSULIN LISPRO
     Indication: DIABETES MELLITUS
     Dosage: UNK (16 - 18 - 0 /JOUR)
     Route: 058
     Dates: end: 20201105
  8. ATORVASTATIN [Suspect]
     Active Substance: ATORVASTATIN
     Indication: PRODUCT USED FOR UNKNOWN INDICATION
     Dosage: 10 MG,QD
     Route: 048
  9. ABASAGLAR [Suspect]
     Active Substance: INSULIN GLARGINE
     Indication: DIABETES MELLITUS
     Dosage: 16 IU, QD
     Route: 058

REACTIONS (1)
  - Vitamin B12 deficiency [Not Recovered/Not Resolved]

NARRATIVE: CASE EVENT DATE: 20201105
